FAERS Safety Report 14671366 (Version 1)
Quarter: 2018Q1

REPORT INFORMATION
  Report Type: Spontaneous
  Country: US (occurrence: US)
  Receive Date: 20180323
  Receipt Date: 20180323
  Transmission Date: 20180509
  Serious: No
  Sender: FDA-Public Use
  Company Number: US-B.I. PHARMACEUTICALS,INC./RIDGEFIELD-2018-BI-014813

PATIENT
  Age: 48 Year
  Sex: Female

DRUGS (12)
  1. DULOXETINE HCL [Concomitant]
     Active Substance: DULOXETINE HYDROCHLORIDE
     Indication: PAIN
  2. VITAMIN B12 [Concomitant]
     Active Substance: CYANOCOBALAMIN
     Indication: SUPPLEMENTATION THERAPY
     Dosage: ONCE DAILY;  FORM STRENGTH: 1000MCG; FORMULATION: TABLET
     Route: 048
  3. BUPROPION. [Concomitant]
     Active Substance: BUPROPION
     Indication: DEPRESSION
     Dosage: BID;  FORM STRENGTH: 75MG; FORMULATION: TABLET
     Route: 048
     Dates: start: 201602
  4. DULOXETINE HCL [Concomitant]
     Active Substance: DULOXETINE HYDROCHLORIDE
     Indication: DEPRESSION
     Dosage: ONCE DAILY;  FORM STRENGTH: 60MG; FORMULATION: CAPSULE
     Route: 048
     Dates: start: 201510
  5. PRADAXA [Suspect]
     Active Substance: DABIGATRAN ETEXILATE MESYLATE
     Indication: DEEP VEIN THROMBOSIS
     Dosage: FORMULATION: CAPSULE? ADMINISTRATION CORRECT? YES ?ACTION(S) TAKEN WITH PRODUCT: DOSE INCREASED
     Route: 048
     Dates: start: 20170319
  6. AZATHIOPRINE. [Concomitant]
     Active Substance: AZATHIOPRINE
     Indication: SKIN DISORDER
     Dosage: ONCE DAILY;  FORM STRENGTH: 100MG; FORMULATION: TABLET
     Route: 048
     Dates: start: 2014
  7. LISINOPRIL. [Concomitant]
     Active Substance: LISINOPRIL
     Indication: HYPERTENSION
     Dosage: ONCE DAILY;  FORM STRENGTH: 20MG; FORMULATION: TABLET
     Route: 048
     Dates: start: 2014
  8. NORTRIPTYLINE HCL [Concomitant]
     Active Substance: NORTRIPTYLINE HYDROCHLORIDE
     Indication: DEPRESSION
     Dosage: ONCE DAILY;  FORM STRENGTH: 75MG; FORMULATION: CAPSULE
     Route: 048
     Dates: start: 191406
  9. ATORVASTATIN [Concomitant]
     Active Substance: ATORVASTATIN
     Indication: PRODUCT USED FOR UNKNOWN INDICATION
     Dosage: ONCE DAILY;  FORM STRENGTH: 20MG; FORMULATION: CAPLET
     Route: 048
     Dates: start: 201705
  10. PRADAXA [Suspect]
     Active Substance: DABIGATRAN ETEXILATE MESYLATE
     Indication: PULMONARY EMBOLISM
  11. PLAQUENIL [Concomitant]
     Active Substance: HYDROXYCHLOROQUINE SULFATE
     Indication: SKIN DISORDER
     Dosage: BID;  FORM STRENGTH: 200MG; FORMULATION: TABLET
     Route: 048
     Dates: start: 1995
  12. CALCIUM/VITAMIN D [Concomitant]
     Active Substance: CALCIUM\VITAMIN D
     Indication: SUPPLEMENTATION THERAPY
     Dosage: BID;  FORM STRENGTH: 600MG/400IU; FORMULATION: CAPSULE
     Route: 048
     Dates: start: 1995

REACTIONS (1)
  - Amnesia [Not Recovered/Not Resolved]

NARRATIVE: CASE EVENT DATE: 201704
